FAERS Safety Report 6659675-9 (Version None)
Quarter: 2010Q1

REPORT INFORMATION
  Report Type: 
  Country: None (occurrence: None)
  Receive Date: 20100330
  Receipt Date: 20100322
  Transmission Date: 20100710
  Serious: Yes (Hospitalization)
  Sender: FDA-Public Use
  Company Number: US-AMGEN-QUU401033

PATIENT
  Sex: Female

DRUGS (4)
  1. NPLATE [Suspect]
     Indication: IDIOPATHIC THROMBOCYTOPENIC PURPURA
     Dates: start: 20091026
  2. CORTICOSTEROIDS [Concomitant]
     Dates: start: 19990201
  3. IMMU-G [Concomitant]
     Dates: start: 19990401
  4. RITUXIMAB [Concomitant]
     Dates: start: 20030101

REACTIONS (1)
  - NEPHRITIS [None]
